FAERS Safety Report 7236393-X (Version None)
Quarter: 2011Q1

REPORT INFORMATION
  Report Type: 
  Country: None (occurrence: None)
  Receive Date: 20110120
  Receipt Date: 20110110
  Transmission Date: 20110831
  Serious: Yes (Other)
  Sender: FDA-Public Use
  Company Number: PHHY2011DK02958

PATIENT
  Sex: Female

DRUGS (1)
  1. GESTODENE AND ETHINYL ESTRADIOL [Suspect]
     Indication: ORAL CONTRACEPTION
     Dosage: 1 DF, UNK
     Route: 048

REACTIONS (1)
  - CEREBRAL THROMBOSIS [None]
